FAERS Safety Report 4467654-5 (Version None)
Quarter: 2004Q4

REPORT INFORMATION
  Report Type: 
  Country: None (occurrence: None)
  Receive Date: 20041004
  Receipt Date: 20041004
  Transmission Date: 20050328
  Serious: Yes (Other)
  Sender: FDA-Public Use
  Company Number: None

PATIENT
  Age: 63 Year
  Sex: Female
  Weight: 113.3993 kg

DRUGS (1)
  1. VIOXX [Suspect]
     Indication: BURSITIS
     Dosage: 1 PER DAY ORAL
     Route: 048
     Dates: start: 20020810, end: 20020908

REACTIONS (3)
  - BREAST DISORDER [None]
  - DYSPEPSIA [None]
  - HYPERAESTHESIA [None]
